FAERS Safety Report 8874117 (Version 3)
Quarter: 2013Q1

REPORT INFORMATION
  Report Type: Spontaneous
  Country: DE (occurrence: DE)
  Receive Date: 20121031
  Receipt Date: 20130313
  Transmission Date: 20140127
  Serious: Yes (Hospitalization, Other)
  Sender: FDA-Public Use
  Company Number: DE-AMGEN-DEUSP2012068426

PATIENT
  Age: 76 Year
  Sex: Male

DRUGS (14)
  1. ENBREL [Suspect]
     Indication: RHEUMATOID ARTHRITIS
     Dosage: 50 MG, QWK
     Route: 058
     Dates: start: 20090714
  2. ANTIBIOTICS [Concomitant]
     Dosage: UNK
  3. AZULFIDINE [Concomitant]
     Dosage: UNK
  4. LOPIRIN                            /00384302/ [Concomitant]
     Dosage: UNK
  5. DECORTIN [Concomitant]
     Dosage: UNK
  6. AMLODIPINE [Concomitant]
     Dosage: UNK
  7. BISOPROLOL [Concomitant]
     Dosage: UNK
  8. ATACAND [Concomitant]
     Dosage: UNK
  9. OMEPRAZOL                          /00661201/ [Concomitant]
     Dosage: UNK
  10. SIMVASTATIN [Concomitant]
     Dosage: UNK
  11. VIGANTOLETTEN [Concomitant]
     Dosage: UNK
  12. TORASEMIDE [Concomitant]
     Dosage: UNK
  13. ASS [Concomitant]
     Dosage: UNK
  14. ERYPO                              /00928302/ [Concomitant]
     Dosage: UNK

REACTIONS (5)
  - Pulmonary oedema [Recovered/Resolved]
  - Nephrosclerosis [Not Recovered/Not Resolved]
  - Arthralgia [Recovered/Resolved]
  - Bone pain [Recovered/Resolved]
  - Pneumonia [Recovered/Resolved]
